FAERS Safety Report 6000081-8 (Version None)
Quarter: 2008Q4

REPORT INFORMATION
  Report Type: 
  Country: None (occurrence: None)
  Receive Date: 20081215
  Receipt Date: 20081205
  Transmission Date: 20090506
  Serious: Yes (Life-Threatening, Hospitalization)
  Sender: FDA-Public Use
  Company Number: B0549304A

PATIENT
  Age: 19 Year
  Sex: Female

DRUGS (3)
  1. AUGMENTIN '125' [Suspect]
     Indication: PYELONEPHRITIS
     Route: 042
     Dates: start: 20080904, end: 20080906
  2. VENOFER [Suspect]
     Dosage: 3UNIT PER DAY
     Route: 042
     Dates: start: 20080904
  3. GENTAMICIN [Concomitant]

REACTIONS (6)
  - BLOOD ALKALINE PHOSPHATASE INCREASED [None]
  - BLOOD BILIRUBIN INCREASED [None]
  - DRUG EXPOSURE DURING PREGNANCY [None]
  - HEPATITIS [None]
  - TRANSAMINASES INCREASED [None]
  - VOMITING [None]
